FAERS Safety Report 10486842 (Version 1)
Quarter: 2014Q3

REPORT INFORMATION
  Report Type: Spontaneous
  Country: US (occurrence: None)
  Receive Date: 20140930
  Receipt Date: 20140930
  Transmission Date: 20150326
  Serious: No
  Sender: FDA-Public Use
  Company Number: None

PATIENT
  Age: 68 Year
  Sex: Female

DRUGS (15)
  1. REVLIMID [Suspect]
     Active Substance: LENALIDOMIDE
     Indication: PLASMA CELL MYELOMA
     Dosage: 25 MG DAILY X21 D/28 D ?ORALLY
     Route: 048
     Dates: start: 20140213, end: 20140929
  2. POTASSIUM CHLORIDE. [Concomitant]
     Active Substance: POTASSIUM CHLORIDE
  3. ASCORBIC ACID. [Concomitant]
     Active Substance: ASCORBIC ACID
  4. CIPROFLOXACIN. [Concomitant]
     Active Substance: CIPROFLOXACIN
  5. ENOXAPARIN [Concomitant]
     Active Substance: ENOXAPARIN
  6. GABAPENTIN. [Concomitant]
     Active Substance: GABAPENTIN
  7. SIMVASTATIN. [Concomitant]
     Active Substance: SIMVASTATIN
  8. WARFARIN [Concomitant]
     Active Substance: WARFARIN
  9. DEXAMETHASONE. [Concomitant]
     Active Substance: DEXAMETHASONE
  10. ONDANSETRON [Concomitant]
     Active Substance: ONDANSETRON
  11. REVLIMID [Suspect]
     Active Substance: LENALIDOMIDE
     Dosage: 15  MG DAILY X21 D/28 D ?ORALLY
     Route: 048
     Dates: start: 20131029, end: 20140213
  12. AZITRHROMYCIN [Concomitant]
  13. OXYCODONE [Concomitant]
     Active Substance: OXYCODONE
  14. SPIRONOLACTONE. [Concomitant]
     Active Substance: SPIRONOLACTONE
  15. FUROSEMIDE. [Concomitant]
     Active Substance: FUROSEMIDE

REACTIONS (1)
  - Pneumonia [None]

NARRATIVE: CASE EVENT DATE: 20140922
